FAERS Safety Report 18905714 (Version 4)
Quarter: 2021Q2

REPORT INFORMATION
  Report Type: Spontaneous
  Country: US (occurrence: US)
  Receive Date: 20210217
  Receipt Date: 20210421
  Transmission Date: 20210717
  Serious: No
  Sender: FDA-Public Use
  Company Number: US-SA-2021SA054552

PATIENT
  Age: 14 Year
  Sex: Female

DRUGS (1)
  1. DUPIXENT [Suspect]
     Active Substance: DUPILUMAB
     Indication: DERMATITIS ATOPIC
     Dosage: 300 MG, QOW
     Route: 058
     Dates: start: 20210108

REACTIONS (5)
  - Drug ineffective [Unknown]
  - Injection site haemorrhage [Recovering/Resolving]
  - Incorrect dose administered [Unknown]
  - Stress [Unknown]
  - Product use issue [Unknown]

NARRATIVE: CASE EVENT DATE: 202101
